FAERS Safety Report 11140753 (Version 1)
Quarter: 2015Q2

REPORT INFORMATION
  Report Type: Spontaneous
  Country: US (occurrence: None)
  Receive Date: 20150526
  Receipt Date: 20150526
  Transmission Date: 20150821
  Serious: No
  Sender: FDA-Public Use
  Company Number: None

PATIENT
  Age: 61 Year
  Sex: Female
  Weight: 76.8 kg

DRUGS (1)
  1. METHYLPREDNISOLONE. [Suspect]
     Active Substance: METHYLPREDNISOLONE
     Indication: PLANTAR FASCIITIS
     Dosage: 4 MG OTHER PO
     Route: 048
     Dates: start: 20150517, end: 20150518

REACTIONS (3)
  - Urticaria [None]
  - Pruritus [None]
  - Anxiety [None]

NARRATIVE: CASE EVENT DATE: 20150518
